FAERS Safety Report 5685086-9 (Version None)
Quarter: 2008Q1

REPORT INFORMATION
  Report Type: 
  Country: None (occurrence: None)
  Receive Date: 20080328
  Receipt Date: 20080318
  Transmission Date: 20080703
  Serious: Yes (Hospitalization, Other)
  Sender: FDA-Public Use
  Company Number: IN-PFIZER INC-2008025184

PATIENT
  Age: 78 Year
  Sex: Male

DRUGS (3)
  1. SERTRALINE [Suspect]
     Indication: DEPRESSION
     Dosage: DAILY DOSE:50MG
  2. TELMISARTAN [Concomitant]
     Dosage: DAILY DOSE:40MG
  3. AMLODIPINE [Concomitant]
     Dosage: DAILY DOSE:5MG

REACTIONS (5)
  - ANOREXIA [None]
  - HYPONATRAEMIA [None]
  - INAPPROPRIATE ANTIDIURETIC HORMONE SECRETION [None]
  - SOMNOLENCE [None]
  - VENTRICULAR EXTRASYSTOLES [None]
